FAERS Safety Report 6212537-3 (Version None)
Quarter: 2009Q2

REPORT INFORMATION
  Report Type: 
  Country: None (occurrence: None)
  Receive Date: 20090603
  Receipt Date: 20090526
  Transmission Date: 20091009
  Serious: Yes (Other)
  Sender: FDA-Public Use
  Company Number: US-BIOGENIDEC-2009BI010350

PATIENT
  Age: 53 Year
  Sex: Male

DRUGS (8)
  1. TYSABRI [Suspect]
     Indication: MULTIPLE SCLEROSIS
     Route: 042
     Dates: start: 20080401, end: 20090301
  2. SIMVASTATIN [Concomitant]
  3. NIASPAN [Concomitant]
  4. NITROGLYCERIN [Concomitant]
  5. CARVEDILOL [Concomitant]
  6. TIZANIDINE HCL [Concomitant]
  7. PREVACID [Concomitant]
  8. KEPPRA [Concomitant]

REACTIONS (2)
  - AMNESIA [None]
  - CARDIAC PACEMAKER INSERTION [None]
